FAERS Safety Report 5369432-1 (Version None)
Quarter: 2007Q2

REPORT INFORMATION
  Report Type: 
  Country: None (occurrence: None)
  Receive Date: 20070625
  Receipt Date: 20070611
  Transmission Date: 20071010
  Serious: Yes (Hospitalization)
  Sender: FDA-Public Use
  Company Number: US-ELI_LILLY_AND_COMPANY-US200703002105

PATIENT
  Age: 45 Year
  Sex: Female

DRUGS (6)
  1. ZYPREXA [Suspect]
     Indication: BIPOLAR DISORDER
     Dosage: 2.5 MG, UNK
     Dates: start: 19980101, end: 20060801
  2. ZYPREXA [Suspect]
     Dosage: 5 MG, UNK
     Dates: start: 19980101, end: 20060801
  3. SEROQUEL [Concomitant]
     Dates: start: 20060822
  4. WELLBUTRIN [Concomitant]
     Dates: start: 20001130
  5. CELEXA [Concomitant]
     Dates: start: 20011219
  6. PROZAC [Concomitant]
     Dates: start: 20060224

REACTIONS (11)
  - BLOOD CHOLESTEROL ABNORMAL [None]
  - BLOOD GLUCOSE ABNORMAL [None]
  - BLOOD TRIGLYCERIDES INCREASED [None]
  - DIABETES MELLITUS NON-INSULIN-DEPENDENT [None]
  - HEART RATE IRREGULAR [None]
  - HYPERGLYCAEMIA [None]
  - HYPERTENSION [None]
  - METABOLIC DISORDER [None]
  - SKIN ULCER [None]
  - VISUAL ACUITY REDUCED [None]
  - WEIGHT INCREASED [None]
